FAERS Safety Report 8734159 (Version 2)
Quarter: 2012Q4

REPORT INFORMATION
  Report Type: 
  Country: US (occurrence: US)
  Receive Date: 20120821
  Receipt Date: 20120828
  Transmission Date: 20130627
  Serious: Yes (Other)
  Sender: FDA-Public Use
  Company Number: US-PFIZER INC-2012199615

PATIENT
  Sex: Female

DRUGS (2)
  1. LYRICA [Suspect]
     Dosage: UNK
     Dates: start: 2008
  2. NEURONTIN [Suspect]
     Dosage: UNK
     Dates: start: 2008

REACTIONS (6)
  - Road traffic accident [Unknown]
  - Neck injury [Unknown]
  - Back disorder [Unknown]
  - Amnesia [Unknown]
  - Post-traumatic stress disorder [Unknown]
  - Feeling abnormal [Unknown]
